FAERS Safety Report 6381559-4 (Version None)
Quarter: 2009Q3

REPORT INFORMATION
  Report Type: 
  Country: None (occurrence: None)
  Receive Date: 20090925
  Receipt Date: 20090916
  Transmission Date: 20100115
  Serious: Yes (Death, Other)
  Sender: FDA-Public Use
  Company Number: GXKR2009GB10369

PATIENT
  Age: 61 Year
  Sex: Male

DRUGS (6)
  1. CYCLOSPORINE [Suspect]
     Indication: IMMUNOSUPPRESSION
     Dates: start: 20061101
  2. METHYLPREDNISOLONE 4MG TAB [Suspect]
     Dosage: 1 G, INTRAVENOUS
     Route: 042
  3. MYCOPHENOLATE MOFETIL [Suspect]
     Indication: IMMUNOSUPPRESSION
     Dates: start: 20061101
  4. ANTITHYMOCYTE IMMUNOGLOBULIN (RABBIT) [Concomitant]
  5. RITUXIMAB (RITUXIMAB) [Concomitant]
  6. NEUPOGEN [Concomitant]

REACTIONS (17)
  - ABDOMINAL PAIN [None]
  - ANEURYSM RUPTURED [None]
  - AORTIC ANEURYSM [None]
  - ARTERIAL DISORDER [None]
  - BRONCHIAL DISORDER [None]
  - CIRCULATORY COLLAPSE [None]
  - COUGH [None]
  - DYSPNOEA EXERTIONAL [None]
  - EPSTEIN-BARR VIRUS ASSOCIATED LYMPHOPROLIFERATIVE DISORDER [None]
  - HAEMODYNAMIC INSTABILITY [None]
  - INTRA-ABDOMINAL HAEMORRHAGE [None]
  - LEUKOPENIA [None]
  - MULTI-ORGAN FAILURE [None]
  - OXYGEN SATURATION DECREASED [None]
  - PULMONARY HILUM MASS [None]
  - SPLENIC ARTERY ANEURYSM [None]
  - TRANSPLANT REJECTION [None]
